FAERS Safety Report 6482884-9 (Version None)
Quarter: 2009Q4

REPORT INFORMATION
  Report Type: 
  Country: None (occurrence: None)
  Receive Date: 20091209
  Receipt Date: 20091207
  Transmission Date: 20100525
  Serious: Yes (Hospitalization, Other)
  Sender: FDA-Public Use
  Company Number: BJ-ROXANE LABORATORIES, INC.-2009-RO-01226RO

PATIENT
  Age: 30 Year
  Sex: Female

DRUGS (8)
  1. ZIDOVUDINE [Suspect]
     Indication: ANTIRETROVIRAL THERAPY
     Dosage: 600 MG
     Dates: start: 20050511, end: 20071030
  2. LAMIVUDINE [Suspect]
     Indication: ANTIRETROVIRAL THERAPY
     Dosage: 300 MG
     Dates: start: 20050511, end: 20071113
  3. NEVIRAPINE [Suspect]
     Indication: ANTIRETROVIRAL THERAPY
     Dosage: 200 MG
     Dates: start: 20050511
  4. NEVIRAPINE [Suspect]
     Dosage: 400 MG
     Dates: end: 20071030
  5. ANTIMALARIAL TREATMENT [Concomitant]
  6. COTRIMOXAZOLE [Concomitant]
     Indication: CEREBRAL TOXOPLASMOSIS
  7. TENOFOVIR [Concomitant]
     Indication: ANTIRETROVIRAL THERAPY
     Dosage: 300 MG
     Dates: start: 20071030
  8. ABACAVIR [Concomitant]
     Indication: ANTIRETROVIRAL THERAPY
     Dosage: 600 MG

REACTIONS (9)
  - ABDOMINAL PAIN [None]
  - EYELID PTOSIS [None]
  - HEADACHE [None]
  - LACTIC ACIDOSIS [None]
  - LOSS OF CONSCIOUSNESS [None]
  - MITOCHONDRIAL TOXICITY [None]
  - MUSCULOSKELETAL STIFFNESS [None]
  - MYOPATHY [None]
  - VOMITING [None]
